FAERS Safety Report 6713619-X (Version None)
Quarter: 2010Q2

REPORT INFORMATION
  Report Type: 
  Country: None (occurrence: None)
  Receive Date: 20100506
  Receipt Date: 20100430
  Transmission Date: 20101027
  Serious: Yes (Hospitalization)
  Sender: FDA-Public Use
  Company Number: A0857503A

PATIENT
  Age: 57 Year
  Sex: Male

DRUGS (14)
  1. LAMICTAL [Suspect]
     Indication: EPILEPSY
     Route: 048
  2. DILANTIN [Suspect]
     Indication: DRUG USE FOR UNKNOWN INDICATION
     Route: 065
  3. VERAPAMIL [Concomitant]
  4. SIMVASTATIN [Concomitant]
  5. TRICOR [Concomitant]
  6. PROSCAR [Concomitant]
  7. FOLIC ACID [Concomitant]
  8. IBUPROFEN [Concomitant]
  9. LISINOPRIL [Concomitant]
  10. RELAFEN [Concomitant]
  11. OLANZAPINE [Concomitant]
  12. KLONOPIN [Concomitant]
  13. UNKNOWN MEDICATION [Concomitant]
  14. CALCIUM [Concomitant]

REACTIONS (2)
  - DIZZINESS [None]
  - PANCYTOPENIA [None]
